FAERS Safety Report 5768886-6 (Version None)
Quarter: 2008Q2

REPORT INFORMATION
  Report Type: 
  Country: None (occurrence: None)
  Receive Date: 20080610
  Receipt Date: 20080530
  Transmission Date: 20081010
  Serious: Yes (Life-Threatening)
  Sender: FDA-Public Use
  Company Number: GXKR2008PL04942

PATIENT
  Age: 71 Year
  Sex: Male
  Weight: 80 kg

DRUGS (1)
  1. AMOKSIKLAV (NGX) (AMOXICILLIN, CLAVULANATE) POWDER FOR SOL FOR INF [Suspect]
     Indication: PYREXIA
     Dosage: 1200 MG, INTRAVENOUS
     Route: 042
     Dates: start: 20080521, end: 20080525

REACTIONS (11)
  - BLOOD BILIRUBIN INCREASED [None]
  - DRUG HYPERSENSITIVITY [None]
  - ERYTHEMA [None]
  - GAMMA-GLUTAMYLTRANSFERASE [None]
  - GASTROINTESTINAL HAEMORRHAGE [None]
  - HEPATIC ENZYME INCREASED [None]
  - HYPOTENSION [None]
  - PRURITUS [None]
  - RASH [None]
  - RENAL FAILURE [None]
  - TRANSAMINASES INCREASED [None]
